FAERS Safety Report 18218141 (Version 1)
Quarter: 2020Q3

REPORT INFORMATION
  Report Type: Spontaneous
  Country: US (occurrence: US)
  Receive Date: 20200831
  Receipt Date: 20200831
  Transmission Date: 20201103
  Serious: Yes (Death)
  Sender: FDA-Public Use
  Company Number: None

PATIENT
  Age: 83 Year
  Sex: Male

DRUGS (22)
  1. ALBUTEROL. [Concomitant]
     Active Substance: ALBUTEROL
  2. CLOTRIMAZOLE. [Concomitant]
     Active Substance: CLOTRIMAZOLE
  3. FINASTERIDE. [Concomitant]
     Active Substance: FINASTERIDE
  4. FLUTICASONE. [Concomitant]
     Active Substance: FLUTICASONE
  5. LANSOPRAZOLE. [Concomitant]
     Active Substance: LANSOPRAZOLE
  6. VITAMIN D [Concomitant]
     Active Substance: VITAMIN D NOS
  7. SIMVASTATIN. [Concomitant]
     Active Substance: SIMVASTATIN
  8. ESBRIET [Suspect]
     Active Substance: PIRFENIDONE
     Indication: IDIOPATHIC PULMONARY FIBROSIS
     Route: 048
     Dates: start: 20200808, end: 202008
  9. FUROSEMIDE. [Concomitant]
     Active Substance: FUROSEMIDE
  10. PREDNISONE. [Concomitant]
     Active Substance: PREDNISONE
  11. PROSCAR [Concomitant]
     Active Substance: FINASTERIDE
  12. TAMSULOSIN [Concomitant]
     Active Substance: TAMSULOSIN
  13. TRELEGY ELLIPTA [Concomitant]
     Active Substance: FLUTICASONE FUROATE\UMECLIDINIUM BROMIDE\VILANTEROL TRIFENATATE
  14. METHYLPRED [Concomitant]
     Active Substance: METHYLPREDNISOLONE
  15. MUPIROCIN. [Concomitant]
     Active Substance: MUPIROCIN
  16. LEVOFLOXACIN. [Concomitant]
     Active Substance: LEVOFLOXACIN
  17. KETOCONAZOLE. [Concomitant]
     Active Substance: KETOCONAZOLE
  18. DICLOFENAC [Concomitant]
     Active Substance: DICLOFENAC
  19. AZITHROMYCIN ANHYDROUS. [Concomitant]
     Active Substance: AZITHROMYCIN ANHYDROUS
  20. BENZONATATE. [Concomitant]
     Active Substance: BENZONATATE
  21. CYCLOBENZAPR [Concomitant]
     Active Substance: CYCLOBENZAPRINE
  22. HYDROXYZ HCL [Concomitant]
     Active Substance: HYDROXYZINE HYDROCHLORIDE

REACTIONS (1)
  - Death [None]

NARRATIVE: CASE EVENT DATE: 202008
